FAERS Safety Report 5897335-2 (Version None)
Quarter: 2008Q3

REPORT INFORMATION
  Report Type: 
  Country: None (occurrence: None)
  Receive Date: 20080925
  Receipt Date: 20070822
  Transmission Date: 20090109
  Serious: No
  Sender: FDA-Public Use
  Company Number: A0674729A

PATIENT
  Sex: Male

DRUGS (2)
  1. EPZICOM [Suspect]
     Indication: HIV INFECTION
     Dosage: 1TAB PER DAY
     Route: 048
  2. PROTEASE INHIBITOR [Concomitant]

REACTIONS (4)
  - HYPERSENSITIVITY [None]
  - MALAISE [None]
  - PYREXIA [None]
  - RASH [None]
